FAERS Safety Report 14674348 (Version 2)
Quarter: 2018Q2

REPORT INFORMATION
  Report Type: Spontaneous
  Country: US (occurrence: US)
  Receive Date: 20180323
  Receipt Date: 20180410
  Transmission Date: 20180711
  Serious: No
  Sender: FDA-Public Use
  Company Number: US-GLAXOSMITHKLINE-US2018048537

PATIENT
  Sex: Female

DRUGS (5)
  1. MODAFINIL. [Suspect]
     Active Substance: MODAFINIL
     Indication: SLEEP APNOEA SYNDROME
     Dosage: 100 MG, UNK
  2. MODAFINIL. [Suspect]
     Active Substance: MODAFINIL
     Dosage: 150 MG, UNK
  3. ADVAIR DISKUS [Suspect]
     Active Substance: FLUTICASONE PROPIONATE\SALMETEROL XINAFOATE
     Indication: CHRONIC OBSTRUCTIVE PULMONARY DISEASE
     Dosage: 100/50UG, BID
  4. ADVAIR DISKUS [Suspect]
     Active Substance: FLUTICASONE PROPIONATE\SALMETEROL XINAFOATE
     Dosage: 500/50UG, BID
  5. MODAFINIL. [Suspect]
     Active Substance: MODAFINIL
     Dosage: 200 MG, UNK

REACTIONS (5)
  - Illogical thinking [Unknown]
  - Sleep apnoea syndrome [Unknown]
  - Somnolence [Unknown]
  - Dyspnoea [Unknown]
  - Aggression [Unknown]
